FAERS Safety Report 8802785 (Version 1)
Quarter: 2012Q4

REPORT INFORMATION
  Report Type: 
  Country: US (occurrence: US)
  Receive Date: 20120921
  Receipt Date: 20120921
  Transmission Date: 20130627
  Serious: Yes (Other)
  Sender: FDA-Public Use
  Company Number: US-009507513-1209USA005931

PATIENT
  Age: 40 Year
  Sex: Female

DRUGS (1)
  1. SAPHRIS [Suspect]
     Dosage: 5 mg, qd
     Route: 060

REACTIONS (14)
  - Pharyngeal hypoaesthesia [Unknown]
  - Cough [Unknown]
  - Product taste abnormal [Unknown]
  - Miosis [Unknown]
  - Dysphagia [Unknown]
  - Vertigo [Unknown]
  - Vision blurred [Unknown]
  - Memory impairment [Unknown]
  - Abasia [Unknown]
  - Glossodynia [Unknown]
  - Hypoaesthesia oral [Unknown]
  - Formication [Unknown]
  - Emotional disorder [Unknown]
  - Dizziness [Unknown]
